FAERS Safety Report 8560872-6 (Version None)
Quarter: 2012Q3

REPORT INFORMATION
  Report Type: 
  Country: None (occurrence: None)
  Receive Date: 20120802
  Receipt Date: 20120723
  Transmission Date: 20120928
  Serious: No
  Sender: FDA-Public Use
  Company Number: US-ASTRAZENECA-2010SE37243

PATIENT
  Age: 64 Year
  Sex: Male

DRUGS (5)
  1. NEXIUM [Suspect]
     Route: 048
  2. NEXIUM [Suspect]
     Route: 048
  3. NEXIUM [Suspect]
     Dosage: GENERIC
     Route: 048
  4. NEXIUM [Suspect]
     Route: 048
  5. OMEPRAZOLE [Suspect]
     Route: 048

REACTIONS (7)
  - GASTROOESOPHAGEAL REFLUX DISEASE [None]
  - BLOOD POTASSIUM INCREASED [None]
  - BLOOD IRON DECREASED [None]
  - PHARYNGEAL MASS [None]
  - THERAPY REGIMEN CHANGED [None]
  - CONDITION AGGRAVATED [None]
  - DRUG INEFFECTIVE [None]
